FAERS Safety Report 9009130 (Version 1)
Quarter: 2013Q1

REPORT INFORMATION
  Report Type: Spontaneous
  Country: US (occurrence: US)
  Receive Date: 20130111
  Receipt Date: 20130111
  Transmission Date: 20140127
  Serious: No
  Sender: FDA-Public Use
  Company Number: US-GLAXOSMITHKLINE-A1003376A

PATIENT
  Age: 59 Year
  Sex: Male

DRUGS (2)
  1. JALYN [Suspect]
     Indication: BENIGN PROSTATIC HYPERPLASIA
     Route: 048
     Dates: start: 201105
  2. VYTORIN [Concomitant]

REACTIONS (1)
  - Erectile dysfunction [Unknown]
